FAERS Safety Report 8177656-3 (Version None)
Quarter: 2012Q1

REPORT INFORMATION
  Report Type: 
  Country: None (occurrence: None)
  Receive Date: 20120301
  Receipt Date: 20120224
  Transmission Date: 20120608
  Serious: Yes (Other)
  Sender: FDA-Public Use
  Company Number: PHEH2012US004769

PATIENT
  Sex: Male
  Weight: 81 kg

DRUGS (8)
  1. MYFORTIC [Suspect]
     Indication: GRAFT VERSUS HOST DISEASE
     Dosage: 200 MG,
     Route: 048
     Dates: start: 20100901, end: 20120101
  2. MYFORTIC [Suspect]
     Dosage: 200 MG,
     Route: 048
     Dates: start: 20100901, end: 20120101
  3. VIAGRA [Suspect]
     Dosage: 50 MG, PRN
     Dates: start: 20110501
  4. BUMETANIDE [Concomitant]
     Indication: DIURETIC THERAPY
     Dosage: 1 MG, DAILY
  5. FLOMAX [Concomitant]
     Indication: DIURETIC THERAPY
     Dosage: 4 MG, DAILY
  6. ACYCLOVIR [Concomitant]
     Indication: ANTIVIRAL PROPHYLAXIS
     Dosage: 400 MG, BID
  7. GABAPENTIN [Concomitant]
  8. KLOR-CON [Concomitant]
     Dosage: 750 MG, QID

REACTIONS (1)
  - LIVER DISORDER [None]
